FAERS Safety Report 25945600 (Version 2)
Quarter: 2025Q4

REPORT INFORMATION
  Report Type: Spontaneous
  Country: US (occurrence: US)
  Receive Date: 20251021
  Receipt Date: 20251117
  Transmission Date: 20260118
  Serious: No
  Sender: VERTEX
  Company Number: US-VERTEX PHARMACEUTICALS-2025-016954

PATIENT

DRUGS (4)
  1. JOURNAVX [Suspect]
     Active Substance: SUZETRIGINE
     Indication: Pain
     Dosage: JOURNAVX, TWICE A DAY (BID)
     Route: 048
  2. PERCOCET [Concomitant]
     Active Substance: ACETAMINOPHEN\OXYCODONE HYDROCHLORIDE
     Indication: Pain
     Dosage: UNK
     Route: 048
     Dates: start: 202510
  3. OXYCODONE [Concomitant]
     Active Substance: OXYCODONE
     Indication: Pain
     Dosage: AT NIGHT FOR THE FIRST WEEK (QD)
  4. OXYCODONE [Concomitant]
     Active Substance: OXYCODONE
     Dosage: AS NEEDED AT NIGHT (QD)

REACTIONS (1)
  - Discomfort [Unknown]
